FAERS Safety Report 5253756-2 (Version None)
Quarter: 2007Q1

REPORT INFORMATION
  Report Type: 
  Country: None (occurrence: None)
  Receive Date: 20070227
  Receipt Date: 20070213
  Transmission Date: 20070707
  Serious: Yes (Hospitalization)
  Sender: FDA-Public Use
  Company Number: 2007BI003524

PATIENT
  Age: 51 Year
  Sex: Male

DRUGS (1)
  1. NATALIZUMAB [Suspect]
     Indication: MULTIPLE SCLEROSIS
     Dosage: 300 MG;QM; IV
     Route: 042
     Dates: start: 20070202

REACTIONS (5)
  - CHOKING [None]
  - LOSS OF CONSCIOUSNESS [None]
  - NEAR DROWNING [None]
  - PNEUMONIA ASPIRATION [None]
  - RESPIRATORY ARREST [None]
